FAERS Safety Report 9631462 (Version 6)
Quarter: 2014Q1

REPORT INFORMATION
  Report Type: Spontaneous
  Country: IT (occurrence: None)
  Receive Date: 20131015
  Receipt Date: 20140219
  Transmission Date: 20141002
  Serious: Yes (Other)
  Sender: FDA-Public Use
  Company Number: 2013IT002604

PATIENT
  Age: 72 Year
  Sex: Male
  Weight: 64 kg

DRUGS (6)
  1. PONATINIB [Suspect]
     Indication: CHRONIC MYELOID LEUKAEMIA
     Route: 048
     Dates: start: 20130327, end: 20130412
  2. LIMBITRYL [Concomitant]
  3. RAMIPRIL (RAMIPRIL) [Concomitant]
  4. NEBIVOLOL HYDROCHLORIDE [Concomitant]
  5. ALLOPURINOL [Concomitant]
  6. ESOMEPRAZOLE [Concomitant]

REACTIONS (4)
  - Peripheral arterial occlusive disease [None]
  - Intermittent claudication [None]
  - Peripheral arterial occlusive disease [None]
  - Femoral artery occlusion [None]
